FAERS Safety Report 5595230-X (Version None)
Quarter: 2008Q1

REPORT INFORMATION
  Report Type: 
  Country: None (occurrence: None)
  Receive Date: 20080117
  Receipt Date: 20080108
  Transmission Date: 20080703
  Serious: Yes (Other)
  Sender: FDA-Public Use
  Company Number: US-PFIZER INC-2008000444

PATIENT

DRUGS (3)
  1. ADRIAMYCIN PFS [Suspect]
  2. CYTOXAN [Suspect]
  3. TAXOTERE [Suspect]

REACTIONS (1)
  - OEDEMA [None]
